FAERS Safety Report 13906087 (Version 2)
Quarter: 2017Q3

REPORT INFORMATION
  Report Type: Spontaneous
  Country: FR (occurrence: FR)
  Receive Date: 20170825
  Receipt Date: 20170905
  Transmission Date: 20171127
  Serious: Yes (Hospitalization)
  Sender: FDA-Public Use
  Company Number: FR-PFIZER INC-2017359705

PATIENT
  Age: 70 Year
  Sex: Male

DRUGS (3)
  1. OXALIPLATINE ARROW [Suspect]
     Active Substance: OXALIPLATIN
     Indication: HEPATOCELLULAR CARCINOMA
     Dosage: 136 MG, 10TH COURSE
     Route: 042
     Dates: start: 20170615, end: 20170615
  2. ELVORINE [Suspect]
     Active Substance: LEUCOVORIN CALCIUM
     Indication: HEPATOCELLULAR CARCINOMA
     Dosage: 400 MG, 10TH COURSE
     Route: 042
     Dates: start: 20170615, end: 20170615
  3. FLUOROURACIL. [Concomitant]
     Active Substance: FLUOROURACIL
     Indication: HEPATOCELLULAR CARCINOMA
     Dosage: 10TH COURSE
     Dates: start: 20170615

REACTIONS (2)
  - Electrocardiogram ST segment elevation [Recovered/Resolved]
  - Acute coronary syndrome [Recovered/Resolved]

NARRATIVE: CASE EVENT DATE: 20170615
